FAERS Safety Report 10967658 (Version 1)
Quarter: 2015Q1

REPORT INFORMATION
  Report Type: Spontaneous
  Country: US (occurrence: US)
  Receive Date: 20150330
  Receipt Date: 20150330
  Transmission Date: 20150721
  Serious: No
  Sender: FDA-Public Use
  Company Number: US-ASTRAZENECA-2004UW25448

PATIENT
  Age: 57 Year
  Sex: Female
  Weight: 83 kg

DRUGS (9)
  1. NEXIUM [Suspect]
     Active Substance: ESOMEPRAZOLE MAGNESIUM
     Indication: ANAEMIA
     Route: 048
  2. NEXIUM [Suspect]
     Active Substance: ESOMEPRAZOLE MAGNESIUM
     Indication: VOLUME BLOOD DECREASED
     Route: 048
  3. NEXIUM [Suspect]
     Active Substance: ESOMEPRAZOLE MAGNESIUM
     Indication: HAEMORRHAGE
     Route: 048
  4. NEXIUM [Suspect]
     Active Substance: ESOMEPRAZOLE MAGNESIUM
     Indication: HAEMORRHAGE
     Route: 048
     Dates: start: 2006
  5. IRON [Concomitant]
     Active Substance: IRON
  6. VERREX 100 [Concomitant]
     Indication: MINERAL SUPPLEMENTATION
     Dosage: NR DAILY
     Route: 048
  7. NEXIUM [Suspect]
     Active Substance: ESOMEPRAZOLE MAGNESIUM
     Indication: ANAEMIA
     Route: 048
     Dates: start: 2006
  8. NEXIUM [Suspect]
     Active Substance: ESOMEPRAZOLE MAGNESIUM
     Indication: VOLUME BLOOD DECREASED
     Route: 048
     Dates: start: 2006
  9. CHEWABLE VITAMIN C [Concomitant]
     Indication: MINERAL SUPPLEMENTATION
     Dosage: NR DAILY
     Route: 048

REACTIONS (6)
  - Ear infection [Unknown]
  - Chest discomfort [Unknown]
  - Nasopharyngitis [Unknown]
  - Volume blood decreased [Unknown]
  - Off label use [Unknown]
  - Dyspnoea [Unknown]

NARRATIVE: CASE EVENT DATE: 2006
